FAERS Safety Report 18887583 (Version 3)
Quarter: 2021Q4

REPORT INFORMATION
  Report Type: Report from Study
  Country: RU (occurrence: RU)
  Receive Date: 20210212
  Receipt Date: 20211221
  Transmission Date: 20220303
  Serious: Yes (Death, Hospitalization)
  Sender: FDA-Public Use
  Company Number: RU-ABBVIE-21K-251-3771990-00

PATIENT
  Age: 60 Year
  Sex: Male
  Weight: 103 kg

DRUGS (11)
  1. VENCLEXTA [Suspect]
     Active Substance: VENETOCLAX
     Indication: Chronic lymphocytic leukaemia
     Route: 048
     Dates: start: 20201208, end: 20201214
  2. VENCLEXTA [Suspect]
     Active Substance: VENETOCLAX
     Route: 048
     Dates: start: 20201215, end: 20201221
  3. VENCLEXTA [Suspect]
     Active Substance: VENETOCLAX
     Route: 048
     Dates: start: 20201222, end: 20210115
  4. VENCLEXTA [Suspect]
     Active Substance: VENETOCLAX
     Route: 048
     Dates: start: 202012, end: 202101
  5. VENCLEXTA [Suspect]
     Active Substance: VENETOCLAX
     Route: 048
     Dates: start: 202101, end: 202101
  6. VENCLEXTA [Suspect]
     Active Substance: VENETOCLAX
     Route: 048
     Dates: start: 202101, end: 20210120
  7. OBINUTUZUMAB [Concomitant]
     Active Substance: OBINUTUZUMAB
     Indication: Chronic lymphocytic leukaemia
     Dates: start: 20201117, end: 20201117
  8. OBINUTUZUMAB [Concomitant]
     Active Substance: OBINUTUZUMAB
     Dates: start: 20201118, end: 20201118
  9. OBINUTUZUMAB [Concomitant]
     Active Substance: OBINUTUZUMAB
     Dates: start: 20201124, end: 20201124
  10. OBINUTUZUMAB [Concomitant]
     Active Substance: OBINUTUZUMAB
     Dates: start: 20201130, end: 20201130
  11. OBINUTUZUMAB [Concomitant]
     Active Substance: OBINUTUZUMAB
     Dates: start: 20201215, end: 20201215

REACTIONS (1)
  - COVID-19 [Fatal]

NARRATIVE: CASE EVENT DATE: 20201220
